FAERS Safety Report 18846767 (Version 1)
Quarter: 2021Q1

REPORT INFORMATION
  Report Type: Report from Study
  Country: US (occurrence: US)
  Receive Date: 20210203
  Receipt Date: 20210203
  Transmission Date: 20210419
  Serious: No
  Sender: FDA-Public Use
  Company Number: US-EXELIXIS-CABO-20027282

PATIENT
  Sex: Male
  Weight: 74.83 kg

DRUGS (13)
  1. METHYLPREDNISOLONE. [Concomitant]
     Active Substance: METHYLPREDNISOLONE
  2. ATORVASTATIN [Concomitant]
     Active Substance: ATORVASTATIN
  3. CABOMETYX [Suspect]
     Active Substance: CABOZANTINIB S-MALATE
     Indication: RENAL CELL CARCINOMA
     Dosage: 60 MG, QD
     Route: 048
     Dates: start: 20191201
  4. IMODIUM [Concomitant]
     Active Substance: LOPERAMIDE HYDROCHLORIDE
  5. ZOMETA [Concomitant]
     Active Substance: ZOLEDRONIC ACID
  6. OMEPRAZOLE. [Concomitant]
     Active Substance: OMEPRAZOLE
  7. ZOPIDEM [Concomitant]
     Active Substance: ZOLPIDEM TARTRATE
  8. METOPROLOL TARTRATE. [Concomitant]
     Active Substance: METOPROLOL TARTRATE
  9. HYDROCORTISONE. [Concomitant]
     Active Substance: HYDROCORTISONE
  10. DOXYCYCLINE. [Concomitant]
     Active Substance: DOXYCYCLINE
  11. HYDROXYZINE [Concomitant]
     Active Substance: HYDROXYZINE HYDROCHLORIDE
  12. PROCHLORPERAZINE EDISYLATE. [Concomitant]
     Active Substance: PROCHLORPERAZINE EDISYLATE
  13. DOXEPIN [Concomitant]
     Active Substance: DOXEPIN

REACTIONS (3)
  - Rash erythematous [Unknown]
  - Diarrhoea [Unknown]
  - Unevaluable event [Unknown]
